FAERS Safety Report 9699561 (Version 1)
Quarter: 2013Q4

REPORT INFORMATION
  Report Type: Spontaneous
  Country: JP (occurrence: JP)
  Receive Date: 20131120
  Receipt Date: 20131120
  Transmission Date: 20140711
  Serious: Yes (Other)
  Sender: FDA-Public Use
  Company Number: PHHY2013JP131350

PATIENT
  Age: 70 Year
  Sex: Male

DRUGS (1)
  1. MEXILETINE [Suspect]
     Indication: POST HERPETIC NEURALGIA

REACTIONS (9)
  - Drug reaction with eosinophilia and systemic symptoms [Recovered/Resolved]
  - Rash [Recovered/Resolved]
  - Skin lesion [Recovered/Resolved]
  - Pyrexia [Recovered/Resolved]
  - Liver disorder [Recovered/Resolved]
  - Leukocytosis [Recovered/Resolved]
  - Human herpesvirus 6 infection [Recovered/Resolved]
  - Lymphadenopathy [Recovered/Resolved]
  - Eosinophilia [Recovered/Resolved]
